FAERS Safety Report 7431799-8 (Version None)
Quarter: 2011Q2

REPORT INFORMATION
  Report Type: 
  Country: None (occurrence: None)
  Receive Date: 20110420
  Receipt Date: 20110420
  Transmission Date: 20111010
  Serious: Yes (Other)
  Sender: FDA-Public Use
  Company Number: None

PATIENT
  Age: 53 Year
  Sex: Male
  Weight: 92.9874 kg

DRUGS (1)
  1. GAMMAGARD S/D [Suspect]
     Indication: HYPERGAMMAGLOBULINAEMIA
     Dosage: 40 GRAMS MONTHLY IV
     Route: 042
     Dates: start: 20041015, end: 20101229

REACTIONS (2)
  - INFUSION RELATED REACTION [None]
  - MUSCLE SPASMS [None]
